FAERS Safety Report 17571876 (Version 1)
Quarter: 2020Q1

REPORT INFORMATION
  Report Type: Spontaneous
  Country: US (occurrence: US)
  Receive Date: 20200321
  Receipt Date: 20200321
  Transmission Date: 20200409
  Serious: Yes (Life-Threatening, Hospitalization)
  Sender: FDA-Public Use
  Company Number: None

PATIENT
  Age: 15 Year
  Sex: Female
  Weight: 57.6 kg

DRUGS (4)
  1. ARIPIPRAZOLE. [Suspect]
     Active Substance: ARIPIPRAZOLE
     Indication: DEPRESSION
     Dosage: ?          QUANTITY:1 TABLET(S);?
     Route: 048
     Dates: start: 20190329, end: 20200303
  2. PRAZOSIN. [Concomitant]
     Active Substance: PRAZOSIN
  3. VISTARIL 50 MG [Concomitant]
  4. SERTRALINE 200 MG [Concomitant]

REACTIONS (4)
  - Visual impairment [None]
  - Suicidal ideation [None]
  - Self-injurious ideation [None]
  - Impulsive behaviour [None]

NARRATIVE: CASE EVENT DATE: 20190709
